FAERS Safety Report 17149496 (Version 5)
Quarter: 2020Q1

REPORT INFORMATION
  Report Type: Report from Study
  Country: US (occurrence: US)
  Receive Date: 20191213
  Receipt Date: 20200130
  Transmission Date: 20200409
  Serious: Yes (Hospitalization)
  Sender: FDA-Public Use
  Company Number: US-ACTELION-A-US2019-199277

PATIENT
  Age: 80 Year
  Sex: Male
  Weight: 88.89 kg

DRUGS (6)
  1. VELETRI [Suspect]
     Active Substance: EPOPROSTENOL
     Dosage: 11 NG/KG, PER MIN
     Route: 042
  2. VELETRI [Suspect]
     Active Substance: EPOPROSTENOL
     Dosage: 9 NG/KG
     Route: 042
  3. TYVASO [Concomitant]
     Active Substance: TREPROSTINIL
     Dosage: UNK
     Dates: start: 202001
  4. ELIQUIS [Concomitant]
     Active Substance: APIXABAN
  5. VELETRI [Suspect]
     Active Substance: EPOPROSTENOL
     Dosage: 5 NG/KG, PER MIN
     Route: 042
  6. VELETRI [Suspect]
     Active Substance: EPOPROSTENOL
     Indication: PULMONARY ARTERIAL HYPERTENSION
     Dosage: 6 NG/KG, PER MIN
     Route: 042
     Dates: end: 20200111

REACTIONS (8)
  - Fatigue [Unknown]
  - Pain in jaw [Unknown]
  - Device connection issue [Unknown]
  - Pneumonitis [Unknown]
  - Therapy change [Recovered/Resolved]
  - Dyspnoea exertional [Unknown]
  - Dyspnoea [Recovering/Resolving]
  - Catheter site related reaction [Unknown]

NARRATIVE: CASE EVENT DATE: 202001
